FAERS Safety Report 15284027 (Version 7)
Quarter: 2019Q3

REPORT INFORMATION
  Report Type: Report from Study
  Country: JP (occurrence: JP)
  Receive Date: 20180816
  Receipt Date: 20190806
  Transmission Date: 20191004
  Serious: Yes (Death, Life-Threatening)
  Sender: FDA-Public Use
  Company Number: JP-ROCHE-2170981

PATIENT
  Age: 76 Year
  Sex: Male
  Weight: 55 kg

DRUGS (5)
  1. TRESIBA [Concomitant]
     Active Substance: INSULIN DEGLUDEC
     Dosage: DOSAGE IS UNCERTAIN.
     Route: 065
  2. METHYCOBAL [Concomitant]
     Active Substance: METHYLCOBALAMIN
     Dosage: DOSAGE IS UNCERTAIN.
     Route: 048
  3. ATEZOLIZUMAB. [Suspect]
     Active Substance: ATEZOLIZUMAB
     Indication: SQUAMOUS CELL CARCINOMA OF LUNG
     Route: 041
     Dates: start: 20180530, end: 20180712
  4. NOVORAPID [Concomitant]
     Active Substance: INSULIN ASPART
     Dosage: DOSAGE IS UNCERTAIN.
     Route: 065
  5. INSULIN [Concomitant]
     Active Substance: INSULIN NOS
     Indication: DIABETES MELLITUS
     Dosage: DOSAGE IS UNCERTAIN.
     Route: 065

REACTIONS (1)
  - Gastrointestinal necrosis [Recovered/Resolved]

NARRATIVE: CASE EVENT DATE: 20180802
